FAERS Safety Report 8341765-6 (Version None)
Quarter: 2012Q2

REPORT INFORMATION
  Report Type: 
  Country: None (occurrence: None)
  Receive Date: 20120507
  Receipt Date: 20120423
  Transmission Date: 20120825
  Serious: Yes (Other)
  Sender: FDA-Public Use
  Company Number: US-ELI_LILLY_AND_COMPANY-US201204008018

PATIENT
  Sex: Male
  Weight: 81.633 kg

DRUGS (9)
  1. CYMBALTA [Suspect]
     Indication: DEPRESSION
     Dosage: 30 MG, BID
     Dates: start: 20111201
  2. LAMICTAL [Concomitant]
     Dosage: UNK
  3. ABILIFY [Concomitant]
     Dosage: 15 MG, QD
     Dates: start: 20111201
  4. BENTYL [Concomitant]
     Indication: PAIN
     Dosage: UNK
  5. DILANTIN [Concomitant]
     Dosage: 80 MG, QD
  6. OXYCODONE HCL [Concomitant]
     Indication: PAIN
     Dosage: 10 MG, QD
  7. COGENTIN                                /USA/ [Concomitant]
     Dosage: 0.5 MG, TID
  8. CHANTIX [Concomitant]
     Indication: SMOKING CESSATION THERAPY
     Dosage: 0.5 MG, UNK
     Dates: start: 20120316
  9. ZANAFLEX [Concomitant]
     Indication: MUSCLE SPASMS
     Dosage: UNK

REACTIONS (1)
  - DEPRESSION [None]
